FAERS Safety Report 10228213 (Version 1)
Quarter: 2014Q2

REPORT INFORMATION
  Report Type: Spontaneous
  Country: JP (occurrence: JP)
  Receive Date: 20140610
  Receipt Date: 20140610
  Transmission Date: 20141212
  Serious: Yes (Death)
  Sender: FDA-Public Use
  Company Number: JP-NAPPMUNDI-GBR-2014-0018641

PATIENT
  Age: 53 Year
  Sex: Male

DRUGS (7)
  1. NORSPAN [Suspect]
     Indication: BACK PAIN
     Dosage: 5 MCG, Q1H
     Route: 062
     Dates: start: 201405, end: 20140530
  2. NORSPAN [Suspect]
     Indication: RENAL FAILURE
     Dosage: 5 MCG, Q1H
     Route: 062
     Dates: start: 201404, end: 201405
  3. NORSPAN [Suspect]
     Dosage: 10 MCG, Q1H
     Route: 062
     Dates: start: 201404, end: 201404
  4. NORSPAN [Suspect]
     Dosage: 5 MCG, Q1H
     Route: 062
     Dates: start: 20140321, end: 201404
  5. CALONAL [Concomitant]
     Dosage: 2400 MG, DAILY
     Route: 048
  6. TRYPTANOL                          /00002202/ [Concomitant]
     Dosage: UNK UNK, UNK
     Route: 065
  7. ANTIDEPRESSANTS [Concomitant]
     Route: 065

REACTIONS (6)
  - Death [Fatal]
  - Nausea [Recovering/Resolving]
  - Vomiting [Recovering/Resolving]
  - Decreased appetite [Unknown]
  - Weight decreased [Unknown]
  - Asthenia [Unknown]
